FAERS Safety Report 17839696 (Version 4)
Quarter: 2020Q3

REPORT INFORMATION
  Report Type: Report from Study
  Country: US (occurrence: US)
  Receive Date: 20200529
  Receipt Date: 20200814
  Transmission Date: 20201103
  Serious: Yes (Other)
  Sender: FDA-Public Use
  Company Number: US-BRISTOL-MYERS SQUIBB COMPANY-BMS-2020-038530

PATIENT
  Sex: Male
  Weight: 65.77 kg

DRUGS (7)
  1. SENNA LAXATIVE [Concomitant]
     Active Substance: SENNOSIDES
     Indication: PRODUCT USED FOR UNKNOWN INDICATION
     Route: 065
  2. NIVOLUMAB [Suspect]
     Active Substance: NIVOLUMAB
     Indication: MALIGNANT MELANOMA
     Dosage: UNK, Q2WK
     Route: 065
     Dates: start: 201801, end: 20190220
  3. FLOMAX [MORNIFLUMATE] [Concomitant]
     Active Substance: MORNIFLUMATE
     Indication: PRODUCT USED FOR UNKNOWN INDICATION
     Route: 065
  4. PREDNISONE. [Suspect]
     Active Substance: PREDNISONE
     Indication: ADRENAL DISORDER
     Dosage: UNK
     Route: 065
  5. NIVOLUMAB [Suspect]
     Active Substance: NIVOLUMAB
     Dosage: ONE YEAR OF OPDIVO ONCE A WEEK
     Route: 065
  6. PREDNISONE. [Suspect]
     Active Substance: PREDNISONE
     Indication: ARTHRITIS
  7. NIVOLUMAB [Suspect]
     Active Substance: NIVOLUMAB
     Dosage: 480 MILLIGRAM, Q4WK
     Route: 042
     Dates: start: 202006

REACTIONS (22)
  - Breast disorder male [Unknown]
  - Catheter site infection [Unknown]
  - Alopecia [Unknown]
  - Arthralgia [Unknown]
  - Melanoma recurrent [Unknown]
  - Colitis [Unknown]
  - Pruritus [Recovering/Resolving]
  - Hypothyroidism [Unknown]
  - Lung disorder [Unknown]
  - Weight decreased [Unknown]
  - Breast pain [Unknown]
  - Muscular weakness [Unknown]
  - Dehydration [Unknown]
  - Dyspnoea [Unknown]
  - Off label use [Unknown]
  - Fatigue [Unknown]
  - Neck pain [Unknown]
  - Drug ineffective [Unknown]
  - Adrenal insufficiency [Unknown]
  - Decreased appetite [Unknown]
  - Asthenia [Unknown]
  - Musculoskeletal stiffness [Unknown]
